FAERS Safety Report 4472405-4 (Version None)
Quarter: 2004Q4

REPORT INFORMATION
  Report Type: 
  Country: None (occurrence: None)
  Receive Date: 20041007
  Receipt Date: 20040920
  Transmission Date: 20050328
  Serious: Yes (Hospitalization)
  Sender: FDA-Public Use
  Company Number: 234549K04USA

PATIENT
  Age: 33 Year
  Sex: Female

DRUGS (3)
  1. REBIF [Suspect]
     Indication: MULTIPLE SCLEROSIS
     Dosage: 44 MCG, 3 IN 1 WEEKS, SUBCUTANEOUS
     Route: 058
     Dates: start: 20020411, end: 20040628
  2. REBIF [Suspect]
     Indication: MULTIPLE SCLEROSIS
     Dosage: 44 MCG, 3 IN 1 WEEKS, SUBCUTANEOUS
     Route: 058
     Dates: start: 20040719
  3. BIRTH CONTROL PILL (ORAL CONTRACEPTIVE NOS) [Suspect]

REACTIONS (7)
  - ASTHENIA [None]
  - BLADDER DISORDER [None]
  - ESCHERICHIA INFECTION [None]
  - PYELONEPHRITIS [None]
  - THROMBOPHLEBITIS SUPERFICIAL [None]
  - TREATMENT NONCOMPLIANCE [None]
  - URINE ODOUR ABNORMAL [None]
